FAERS Safety Report 20768293 (Version 3)
Quarter: 2022Q2

REPORT INFORMATION
  Report Type: Report from Study
  Country: NO (occurrence: NO)
  Receive Date: 20220429
  Receipt Date: 20220606
  Transmission Date: 20220721
  Serious: Yes (Hospitalization, Other)
  Sender: FDA-Public Use
  Company Number: NO-BRISTOL-MYERS SQUIBB COMPANY-2022-025449

PATIENT
  Sex: Male
  Weight: 74 kg

DRUGS (7)
  1. NIVOLUMAB [Suspect]
     Active Substance: NIVOLUMAB
     Indication: Oesophageal carcinoma
     Dosage: DURING RADIOTHERAPY
     Route: 042
     Dates: start: 20200923, end: 20220112
  2. NIVOLUMAB [Suspect]
     Active Substance: NIVOLUMAB
     Route: 042
     Dates: start: 202101, end: 20220112
  3. PACLITAXEL [Suspect]
     Active Substance: PACLITAXEL
     Indication: Oesophageal carcinoma
     Dosage: DURING RADIOTHERAPY
     Route: 042
     Dates: start: 20200923
  4. PACLITAXEL [Suspect]
     Active Substance: PACLITAXEL
     Dosage: MONOTHERAPY ADJUVANT AFTER SURGERY
     Route: 042
     Dates: end: 20220112
  5. CARBOPLATIN [Suspect]
     Active Substance: CARBOPLATIN
     Indication: Oesophageal carcinoma
     Dosage: AUC2 Q1W DURING RADIOTHERAPY
     Route: 042
     Dates: start: 20200923, end: 20220112
  6. ELIQUIS [Suspect]
     Active Substance: APIXABAN
     Indication: Thrombosis prophylaxis
     Dates: start: 20220127, end: 20220329
  7. FRAGMIN [Concomitant]
     Active Substance: DALTEPARIN SODIUM
     Indication: Product used for unknown indication
     Dates: start: 20210310, end: 20220126

REACTIONS (3)
  - Subarachnoid haemorrhage [Unknown]
  - Head injury [Unknown]
  - Syncope [Unknown]

NARRATIVE: CASE EVENT DATE: 20220329
